FAERS Safety Report 5782446-2 (Version None)
Quarter: 2008Q2

REPORT INFORMATION
  Report Type: 
  Country: None (occurrence: None)
  Receive Date: 20080623
  Receipt Date: 20080609
  Transmission Date: 20081010
  Serious: Yes (Other)
  Sender: FDA-Public Use
  Company Number: PHHY2008BR10813

PATIENT
  Age: 61 Year
  Sex: Female
  Weight: 69 kg

DRUGS (3)
  1. ZELMAC [Suspect]
     Indication: IRRITABLE BOWEL SYNDROME
     Dosage: 6 MG
     Dates: start: 20030101
  2. ZELMAC [Suspect]
     Dosage: 1 TABLET/ DAY
     Route: 048
     Dates: start: 20080510
  3. TOPTIL [Concomitant]
     Dosage: 1 APPLICATION PER DAY FOR MANY TIME
     Route: 061

REACTIONS (3)
  - DEFAECATION URGENCY [None]
  - DIARRHOEA [None]
  - FLATULENCE [None]
